FAERS Safety Report 9175894 (Version 1)
Quarter: 2013Q1

REPORT INFORMATION
  Report Type: Spontaneous
  Country: IE (occurrence: IE)
  Receive Date: 20130320
  Receipt Date: 20130320
  Transmission Date: 20140127
  Serious: Yes (Other)
  Sender: FDA-Public Use
  Company Number: IE-GILEAD-2013-0072026

PATIENT
  Sex: Male

DRUGS (2)
  1. RANOLAZINE [Suspect]
     Indication: ANGINA PECTORIS
  2. XALKORI [Suspect]
     Dosage: 250 MG, BID
     Dates: start: 201302

REACTIONS (1)
  - Cardiac arrest [Unknown]
